FAERS Safety Report 17578345 (Version 1)
Quarter: 2020Q1

REPORT INFORMATION
  Report Type: Spontaneous
  Country: DE (occurrence: DE)
  Receive Date: 20200324
  Receipt Date: 20200324
  Transmission Date: 20200409
  Serious: Yes (Other)
  Sender: FDA-Public Use
  Company Number: DE-GALDERMA-DE2020014334

PATIENT
  Age: 17 Year
  Sex: Female

DRUGS (1)
  1. MIRVASO [Suspect]
     Active Substance: BRIMONIDINE TARTRATE
     Indication: ROSACEA
     Dosage: 3 MG/G
     Route: 003

REACTIONS (3)
  - Asthenia [Unknown]
  - Overdose [Recovered/Resolved]
  - Bradycardia [Unknown]

NARRATIVE: CASE EVENT DATE: 20200130
